FAERS Safety Report 8311898-9 (Version None)
Quarter: 2012Q2

REPORT INFORMATION
  Report Type: 
  Country: None (occurrence: None)
  Receive Date: 20120425
  Receipt Date: 20120416
  Transmission Date: 20120825
  Serious: Yes (Life-Threatening, Hospitalization, Disabling, Other)
  Sender: FDA-Public Use
  Company Number: US-ACTELION-A-US2012-60801

PATIENT

DRUGS (2)
  1. TRACLEER [Suspect]
     Indication: PULMONARY ARTERIAL HYPERTENSION
     Dosage: UNK
     Route: 048
     Dates: start: 20081013
  2. REVATIO [Concomitant]

REACTIONS (4)
  - SURGERY [None]
  - WEIGHT DECREASED [None]
  - GASTROINTESTINAL CARCINOMA [None]
  - DYSPNOEA [None]
